FAERS Safety Report 10433017 (Version 3)
Quarter: 2014Q4

REPORT INFORMATION
  Report Type: Spontaneous
  Country: US (occurrence: US)
  Receive Date: 20140905
  Receipt Date: 20141001
  Transmission Date: 20150528
  Serious: No
  Sender: FDA-Public Use
  Company Number: US-TEVA-506457USA

PATIENT
  Sex: Female

DRUGS (1)
  1. COPAXONE [Suspect]
     Active Substance: GLATIRAMER ACETATE
     Indication: MULTIPLE SCLEROSIS
     Dates: start: 2009, end: 2014

REACTIONS (3)
  - Injection site atrophy [Unknown]
  - Pain in extremity [Unknown]
  - Abdominal pain upper [Unknown]
